FAERS Safety Report 6207182-X (Version None)
Quarter: 2009Q2

REPORT INFORMATION
  Report Type: 
  Country: None (occurrence: None)
  Receive Date: 20090522
  Receipt Date: 20090123
  Transmission Date: 20091009
  Serious: Yes (Other)
  Sender: FDA-Public Use
  Company Number: 56296

PATIENT
  Sex: Female

DRUGS (1)
  1. KETOROLAC TROMETHAMINE [Suspect]
     Indication: MIGRAINE
     Dosage: 30MG - 60MG IV PUSH/2 OR 3 DAYS ONCE A WEEK
     Route: 042

REACTIONS (1)
  - VERTIGO [None]
